FAERS Safety Report 9631203 (Version 1)
Quarter: 2013Q4

REPORT INFORMATION
  Report Type: Spontaneous
  Country: US (occurrence: None)
  Receive Date: 20131016
  Receipt Date: 20131016
  Transmission Date: 20140711
  Serious: Yes (Death)
  Sender: FDA-Public Use
  Company Number: None

PATIENT
  Age: 62 Year
  Sex: Female

DRUGS (14)
  1. DABIGATRAN [Suspect]
     Indication: PULMONARY EMBOLISM
     Dosage: 1 DOSE
     Route: 048
  2. AMLODIPINE [Concomitant]
  3. ATORVASTATOM [Concomitant]
  4. DEXAMETHASONE [Concomitant]
  5. DOCUSATE SODIUM\SENNOSIDES [Concomitant]
  6. FUROSEMIDE [Concomitant]
  7. HYDROCHLOROTHIAZIDE-TRIAMPTERENE [Concomitant]
  8. INSULIN [Concomitant]
  9. LEVETIRACETAM [Concomitant]
  10. LISINOPRIL [Concomitant]
  11. MANNITOL [Concomitant]
  12. METOPROLOL [Concomitant]
  13. MICONAZOLE [Concomitant]
  14. PANTOPRAZOLE [Concomitant]

REACTIONS (1)
  - Haemorrhage intracranial [None]
